FAERS Safety Report 15951801 (Version 1)
Quarter: 2019Q1

REPORT INFORMATION
  Report Type: Spontaneous
  Country: US (occurrence: US)
  Receive Date: 20190211
  Receipt Date: 20190211
  Transmission Date: 20190417
  Serious: Yes (Hospitalization)
  Sender: FDA-Public Use
  Company Number: US-BIOGEN-2011BI023330

PATIENT
  Age: 39 Year
  Sex: Female

DRUGS (1)
  1. TYSABRI [Suspect]
     Active Substance: NATALIZUMAB
     Indication: MULTIPLE SCLEROSIS
     Dosage: INFUSED OVER 1 HOUR
     Route: 042
     Dates: start: 20110622, end: 20111006

REACTIONS (20)
  - Balance disorder [Not Recovered/Not Resolved]
  - Fatigue [Recovered/Resolved]
  - Upper limb fracture [Not Recovered/Not Resolved]
  - Dysarthria [Recovered/Resolved]
  - Nipple exudate bloody [Recovered/Resolved]
  - Malaise [Not Recovered/Not Resolved]
  - Infection [Not Recovered/Not Resolved]
  - Pyrexia [Recovered/Resolved]
  - Confusional state [Not Recovered/Not Resolved]
  - Headache [Unknown]
  - Fall [Recovered/Resolved]
  - Impaired self-care [Not Recovered/Not Resolved]
  - Multiple sclerosis [Recovered/Resolved]
  - Gait disturbance [Recovered/Resolved]
  - Tremor [Unknown]
  - Mastitis [Recovered/Resolved]
  - Vomiting [Recovered/Resolved]
  - Asthenia [Recovered/Resolved]
  - Nausea [Recovered/Resolved]
  - Rash pruritic [Recovered/Resolved]

NARRATIVE: CASE EVENT DATE: 20110622
